FAERS Safety Report 10076800 (Version 1)
Quarter: 2014Q2

REPORT INFORMATION
  Report Type: Spontaneous
  Country: FR (occurrence: FR)
  Receive Date: 20140414
  Receipt Date: 20140414
  Transmission Date: 20141212
  Serious: Yes (Life-Threatening)
  Sender: FDA-Public Use
  Company Number: FR-WATSON-2014-06976

PATIENT
  Age: 63 Year
  Sex: Female

DRUGS (3)
  1. ZOLPIDEM ARROW [Suspect]
     Indication: PRODUCT USED FOR UNKNOWN INDICATION
     Dosage: UNK
     Route: 048
     Dates: start: 20140201, end: 20140212
  2. PAROXETINE ARROW [Suspect]
     Indication: PRODUCT USED FOR UNKNOWN INDICATION
     Dosage: UNK
     Route: 048
     Dates: start: 20140201, end: 20140212
  3. TRANXENE [Suspect]
     Indication: PRODUCT USED FOR UNKNOWN INDICATION
     Dosage: UNK
     Route: 048
     Dates: start: 20140201, end: 20140212

REACTIONS (3)
  - Coma [Recovered/Resolved]
  - Somnolence [Recovered/Resolved]
  - General physical health deterioration [Recovered/Resolved]
